FAERS Safety Report 16907776 (Version 2)
Quarter: 2019Q4

REPORT INFORMATION
  Report Type: Report from Study
  Country: US (occurrence: US)
  Receive Date: 20191011
  Receipt Date: 20191031
  Transmission Date: 20200122
  Serious: Yes (Life-Threatening, Other)
  Sender: FDA-Public Use
  Company Number: US-MYLANLABS-2019M1094174

PATIENT
  Sex: Male
  Weight: 81.64 kg

DRUGS (2)
  1. EPINEPHRINE. [Suspect]
     Active Substance: EPINEPHRINE
     Indication: DYSPNOEA
  2. EPINEPHRINE. [Suspect]
     Active Substance: EPINEPHRINE
     Indication: CONTRAST MEDIA ALLERGY
     Dosage: 2 DOSAGE FORM (2 EPIPEN^S)
     Route: 065

REACTIONS (1)
  - Drug ineffective [Unknown]
